FAERS Safety Report 5611994-0 (Version None)
Quarter: 2008Q1

REPORT INFORMATION
  Report Type: 
  Country: None (occurrence: None)
  Receive Date: 20080204
  Receipt Date: 20071210
  Transmission Date: 20080703
  Serious: Yes (Other)
  Sender: FDA-Public Use
  Company Number: TR-BAYER-200718142GPV

PATIENT
  Age: 53 Year
  Sex: Male

DRUGS (1)
  1. LEUKOMAX [Suspect]
     Indication: HAEMATOPOIETIC STEM CELL MOBILISATION
     Dosage: TOTAL DAILY DOSE: 5 ?G/KG
     Route: 065

REACTIONS (3)
  - ARTHRALGIA [None]
  - ARTHRITIS [None]
  - JOINT SWELLING [None]
